FAERS Safety Report 8437080-2 (Version None)
Quarter: 2012Q2

REPORT INFORMATION
  Report Type: 
  Country: None (occurrence: None)
  Receive Date: 20120614
  Receipt Date: 20120424
  Transmission Date: 20120825
  Serious: No
  Sender: FDA-Public Use
  Company Number: US-AMGEN-USASP2012017107

PATIENT
  Age: 54 Year
  Sex: Male
  Weight: 96.599 kg

DRUGS (2)
  1. XGEVA [Suspect]
     Indication: PRODUCT USED FOR UNKNOWN INDICATION
     Dosage: 120 MG, Q4WK
     Route: 042
     Dates: start: 20110401
  2. XGEVA [Suspect]
     Dosage: 120 MG, Q4WK
     Route: 058
     Dates: start: 20110407, end: 20120419

REACTIONS (1)
  - INCORRECT ROUTE OF DRUG ADMINISTRATION [None]
